FAERS Safety Report 6372027-4 (Version None)
Quarter: 2009Q3

REPORT INFORMATION
  Report Type: 
  Country: None (occurrence: None)
  Receive Date: 20090917
  Receipt Date: 20090907
  Transmission Date: 20100115
  Serious: Yes (Hospitalization)
  Sender: FDA-Public Use
  Company Number: URSO-2009-101

PATIENT
  Age: 71 Year
  Sex: Male

DRUGS (4)
  1. URSO TABLETS (URSODESOXYCHOLIC ACID) [Suspect]
     Indication: LIVER DISORDER
     Dosage: 100MG PO
     Route: 048
     Dates: start: 20090601, end: 20090720
  2. INDERAL [Suspect]
     Dosage: 10 MG ORAL
     Route: 048
     Dates: start: 20090707, end: 20090720
  3. CINACALCET HYDROCHLORIDE [Suspect]
     Dosage: 25MG ORAL
     Route: 048
     Dates: start: 20090718, end: 20090720
  4. LASIX [Suspect]
     Dosage: 40MG ORAL
     Route: 048
     Dates: end: 20090720

REACTIONS (4)
  - DRUG INEFFECTIVE [None]
  - ISCHAEMIC HEPATITIS [None]
  - JAUNDICE CHOLESTATIC [None]
  - LIVER DISORDER [None]
